FAERS Safety Report 4728904-0 (Version None)
Quarter: 2005Q3

REPORT INFORMATION
  Report Type: 
  Country: None (occurrence: None)
  Receive Date: 20050729
  Receipt Date: 20050504
  Transmission Date: 20060218
  Serious: No
  Sender: FDA-Public Use
  Company Number: US-GLAXOSMITHKLINE-A0557271A

PATIENT
  Sex: Female

DRUGS (5)
  1. IMITREX [Suspect]
     Indication: MIGRAINE
     Dosage: 50MG TWICE PER DAY
     Route: 048
  2. VICODIN [Concomitant]
  3. METHADONE [Concomitant]
  4. ZOMIG [Concomitant]
  5. INDOMETHACIN [Concomitant]

REACTIONS (1)
  - DRUG INEFFECTIVE [None]
